FAERS Safety Report 17491719 (Version 1)
Quarter: 2020Q1

REPORT INFORMATION
  Report Type: Spontaneous
  Country: US (occurrence: US)
  Receive Date: 20200303
  Receipt Date: 20200303
  Transmission Date: 20200409
  Serious: Yes (Other)
  Sender: FDA-Public Use
  Company Number: US-NOVOPROD-658420

PATIENT
  Age: 62 Year
  Sex: Male

DRUGS (3)
  1. VICTOZA [Suspect]
     Active Substance: LIRAGLUTIDE
     Dosage: INADVERTENTLY GAVE HIMSELF 3/4 OF THE ENTIRE PEN OR 3
     Route: 058
     Dates: start: 20190413
  2. VICTOZA [Suspect]
     Active Substance: LIRAGLUTIDE
     Dosage: UNK
     Route: 058
  3. VICTOZA [Suspect]
     Active Substance: LIRAGLUTIDE
     Indication: DIABETES MELLITUS MANAGEMENT
     Dosage: 1.8 MG (STARTED 2 YEARS AGO)
     Route: 058

REACTIONS (4)
  - Incorrect dose administered by device [Unknown]
  - Device defective [Unknown]
  - Dysphonia [Unknown]
  - Blood glucose decreased [Unknown]

NARRATIVE: CASE EVENT DATE: 20190413
